FAERS Safety Report 6408978-1 (Version None)
Quarter: 2009Q4

REPORT INFORMATION
  Report Type: 
  Country: None (occurrence: None)
  Receive Date: 20091019
  Receipt Date: 20091019
  Transmission Date: 20100525
  Serious: Yes (Life-Threatening)
  Sender: FDA-Public Use
  Company Number: None

PATIENT
  Age: 74 Year
  Sex: Male
  Weight: 74.8435 kg

DRUGS (1)
  1. PRILOSEC [Suspect]
     Indication: BARRETT'S OESOPHAGUS
     Dosage: ONE DAILY
     Dates: start: 20081107, end: 20090510

REACTIONS (16)
  - ANAEMIA [None]
  - DECREASED APPETITE [None]
  - DYSGEUSIA [None]
  - FEELING ABNORMAL [None]
  - FOOD CRAVING [None]
  - GLOSSODYNIA [None]
  - MALAISE [None]
  - MICTURITION URGENCY [None]
  - NOCTURIA [None]
  - OROPHARYNGEAL PAIN [None]
  - POLYURIA [None]
  - PYREXIA [None]
  - RENAL FAILURE [None]
  - THIRST [None]
  - WEIGHT DECREASED [None]
  - WHITE BLOOD CELLS URINE POSITIVE [None]
